FAERS Safety Report 7351781-9 (Version None)
Quarter: 2011Q1

REPORT INFORMATION
  Report Type: 
  Country: None (occurrence: None)
  Receive Date: 20110315
  Receipt Date: 20100916
  Transmission Date: 20110831
  Serious: Yes (Hospitalization, Other)
  Sender: FDA-Public Use
  Company Number: US-BAYER-201012015NA

PATIENT
  Sex: Female
  Weight: 104.55 kg

DRUGS (7)
  1. YAZ [Suspect]
     Indication: EMOTIONAL DISORDER
  2. GLUCOPHAGE [Concomitant]
     Indication: WEIGHT DECREASED
     Dates: start: 20070801, end: 20080501
  3. OCELLA [Suspect]
     Indication: ACNE
     Route: 048
     Dates: start: 20060801, end: 20100301
  4. YASMIN [Suspect]
     Indication: EMOTIONAL DISORDER
  5. OCELLA [Suspect]
     Indication: EMOTIONAL DISORDER
  6. YASMIN [Suspect]
     Indication: ACNE
     Route: 048
     Dates: start: 20060801, end: 20100301
  7. YAZ [Suspect]
     Indication: ACNE
     Route: 048
     Dates: start: 20060801, end: 20100301

REACTIONS (5)
  - GASTRIC DISORDER [None]
  - ABDOMINAL PAIN UPPER [None]
  - CHOLECYSTITIS [None]
  - PANCREATITIS [None]
  - CHOLELITHIASIS [None]
